FAERS Safety Report 6973686-5 (Version None)
Quarter: 2010Q3

REPORT INFORMATION
  Report Type: 
  Country: None (occurrence: None)
  Receive Date: 20100909
  Receipt Date: 20100826
  Transmission Date: 20110219
  Serious: Yes (Hospitalization, Other)
  Sender: FDA-Public Use
  Company Number: US-ELI_LILLY_AND_COMPANY-US201008008452

PATIENT
  Age: 87 Year
  Sex: Female

DRUGS (7)
  1. FORTEO [Suspect]
     Indication: OSTEOPOROSIS
     Dosage: 20 UG, DAILY (1/D)
     Dates: start: 20100601, end: 20100808
  2. TIMOLOL [Concomitant]
     Indication: GLAUCOMA
  3. DORZOLAMIDE HYDROCHLORIDE [Concomitant]
     Dosage: UNK, 3/D
  4. ALPHAGAN [Concomitant]
  5. TRAVATAN [Concomitant]
  6. VITAMIN TAB [Concomitant]
  7. PREDNISONE [Concomitant]

REACTIONS (8)
  - BLOOD PRESSURE DECREASED [None]
  - BLOOD PRESSURE FLUCTUATION [None]
  - HEART RATE ABNORMAL [None]
  - HYPERSENSITIVITY [None]
  - INVESTIGATION [None]
  - LOSS OF CONSCIOUSNESS [None]
  - MALAISE [None]
  - MEMORY IMPAIRMENT [None]
